FAERS Safety Report 19368846 (Version 1)
Quarter: 2021Q2

REPORT INFORMATION
  Report Type: Spontaneous
  Country: JP (occurrence: JP)
  Receive Date: 20210602
  Receipt Date: 20210602
  Transmission Date: 20210717
  Serious: Yes (Other)
  Sender: FDA-Public Use
  Company Number: JP-TAKEDA-2021TJP029392

PATIENT
  Sex: Male

DRUGS (1)
  1. TRINTELLIX [Suspect]
     Active Substance: VORTIOXETINE HYDROBROMIDE
     Indication: BIPOLAR DISORDER
     Dosage: UNK
     Route: 065

REACTIONS (6)
  - Suicidal ideation [Unknown]
  - Irritability [Unknown]
  - Suicidal behaviour [Unknown]
  - Agitation [Unknown]
  - Suicide attempt [Unknown]
  - Off label use [Unknown]
